FAERS Safety Report 19375413 (Version 1)
Quarter: 2021Q2

REPORT INFORMATION
  Report Type: Spontaneous
  Country: BR (occurrence: BR)
  Receive Date: 20210604
  Receipt Date: 20210604
  Transmission Date: 20210717
  Serious: Yes (Hospitalization, Other)
  Sender: FDA-Public Use
  Company Number: BR-ABBVIE-21K-020-3930046-00

PATIENT
  Age: 65 Year
  Sex: Female
  Weight: 60 kg

DRUGS (2)
  1. HUMIRA [Suspect]
     Active Substance: ADALIMUMAB
     Indication: PRODUCT USED FOR UNKNOWN INDICATION
     Dosage: UNSPECIFIED DOSE
     Route: 058
     Dates: start: 2011
  2. HUMIRA [Suspect]
     Active Substance: ADALIMUMAB
     Dosage: UNSPECIFIED DOSE
     Route: 058
     Dates: start: 202105

REACTIONS (11)
  - Foot deformity [Unknown]
  - Skeletal injury [Unknown]
  - Platelet count decreased [Unknown]
  - Viral infection [Unknown]
  - Hospitalisation [Unknown]
  - Gait disturbance [Unknown]
  - Hypersensitivity [Unknown]
  - Thrombosis [Unknown]
  - Pain [Unknown]
  - Peripheral swelling [Unknown]
  - Gait inability [Unknown]

NARRATIVE: CASE EVENT DATE: 2020
